FAERS Safety Report 7798281-X (Version None)
Quarter: 2011Q4

REPORT INFORMATION
  Report Type: 
  Country: None (occurrence: None)
  Receive Date: 20111005
  Receipt Date: 20110928
  Transmission Date: 20120403
  Serious: Yes (Hospitalization)
  Sender: FDA-Public Use
  Company Number: JP-AMGEN-JPNCT2011051283

PATIENT
  Sex: Female

DRUGS (2)
  1. BLINDED DENOSUMAB [Suspect]
     Indication: BREAST CANCER
     Dosage: UNK, Q4WK
     Route: 058
     Dates: start: 20110901
  2. BLINDED PLACEBO [Suspect]
     Indication: BREAST CANCER
     Dosage: UNK, Q4WK
     Route: 058
     Dates: start: 20110901

REACTIONS (1)
  - VOMITING [None]
